FAERS Safety Report 14480640 (Version 1)
Quarter: 2018Q1

REPORT INFORMATION
  Report Type: Spontaneous
  Country: US (occurrence: US)
  Receive Date: 20180201
  Receipt Date: 20180201
  Transmission Date: 20180509
  Serious: Yes (Disabling)
  Sender: FDA-Public Use
  Company Number: None

PATIENT
  Age: 74 Year
  Sex: Female
  Weight: 47.25 kg

DRUGS (3)
  1. ANTI DIABETIC DRUGS [Concomitant]
  2. STATINS [Concomitant]
     Active Substance: UNSPECIFIED INGREDIENT
  3. OPALESCENCE TOOTH WHITENING (HYDROGEN PEROXIDE) [Suspect]
     Active Substance: HYDROGEN PEROXIDE
     Indication: DENTAL COSMETIC PROCEDURE
     Dosage: ?          QUANTITY:8 SYRINGE;OTHER ROUTE:APLIED TO TEETH?
     Dates: start: 20180131, end: 20180131

REACTIONS (4)
  - Mouth ulceration [None]
  - Accidental exposure to product [None]
  - Lip pain [None]
  - Lip swelling [None]

NARRATIVE: CASE EVENT DATE: 20180131
